FAERS Safety Report 9502592 (Version 1)
Quarter: 2013Q3

REPORT INFORMATION
  Report Type: Spontaneous
  Country: US (occurrence: US)
  Receive Date: 20130906
  Receipt Date: 20130906
  Transmission Date: 20140515
  Serious: No
  Sender: FDA-Public Use
  Company Number: US-009507513-1309USA000363

PATIENT
  Age: 47 Year
  Sex: Female

DRUGS (3)
  1. EMEND [Suspect]
     Dosage: UNK
  2. DOXORUBICIN [Concomitant]
     Indication: BREAST CANCER
     Dosage: 96 MG, QOW
     Route: 042
     Dates: start: 20130710
  3. CYTOXAN [Concomitant]
     Indication: BREAST CANCER
     Dosage: 960 MG, QOW
     Route: 042
     Dates: start: 20130710

REACTIONS (1)
  - Drug hypersensitivity [Unknown]
